FAERS Safety Report 20053267 (Version 19)
Quarter: 2025Q1

REPORT INFORMATION
  Report Type: Spontaneous
  Country: US (occurrence: US)
  Receive Date: 20211110
  Receipt Date: 20250304
  Transmission Date: 20250409
  Serious: Yes (Disabling, Other)
  Sender: PFIZER
  Company Number: US-PFIZER INC-2021608489

PATIENT
  Age: 37 Year
  Sex: Female

DRUGS (2)
  1. XELJANZ XR [Suspect]
     Active Substance: TOFACITINIB CITRATE
     Indication: Rheumatoid arthritis
     Route: 048
     Dates: start: 2018
  2. AIMOVIG [Suspect]
     Active Substance: ERENUMAB-AOOE
     Indication: Migraine

REACTIONS (50)
  - Gastric ulcer [Unknown]
  - Joint arthroplasty [Unknown]
  - Dystonia [Unknown]
  - Knee arthroplasty [Unknown]
  - Fatigue [Unknown]
  - Rheumatoid arthritis [Unknown]
  - Tenosynovitis stenosans [Unknown]
  - Precancerous skin lesion [Unknown]
  - Therapeutic product effect incomplete [Unknown]
  - Condition aggravated [Not Recovered/Not Resolved]
  - Somnolence [Unknown]
  - Inflammation [Unknown]
  - Stress [Unknown]
  - Migraine [Not Recovered/Not Resolved]
  - Gastrointestinal disorder [Unknown]
  - COVID-19 [Not Recovered/Not Resolved]
  - Peripheral venous disease [Unknown]
  - Illness [Recovering/Resolving]
  - Swelling [Unknown]
  - Arthralgia [Unknown]
  - Osteoarthritis [Unknown]
  - Tendonitis [Unknown]
  - Post-acute COVID-19 syndrome [Unknown]
  - Upper respiratory tract infection [Recovered/Resolved]
  - Discomfort [Unknown]
  - Upper-airway cough syndrome [Unknown]
  - Chronic sinusitis [Unknown]
  - Gastrooesophageal reflux disease [Unknown]
  - Anxiety [Unknown]
  - Dyspnoea [Unknown]
  - Tachycardia [Unknown]
  - Alopecia [Not Recovered/Not Resolved]
  - Pain in extremity [Unknown]
  - Gait disturbance [Unknown]
  - Injury [Unknown]
  - Sensitivity to weather change [Unknown]
  - Poor quality sleep [Not Recovered/Not Resolved]
  - Gingival recession [Unknown]
  - Dermal cyst [Unknown]
  - Muscle spasms [Unknown]
  - Sinus disorder [Unknown]
  - Respiratory tract infection [Unknown]
  - Eye swelling [Unknown]
  - Influenza like illness [Unknown]
  - Periorbital swelling [Unknown]
  - Ocular hyperaemia [Unknown]
  - Lacrimation increased [Unknown]
  - Eye pain [Unknown]
  - Immune system disorder [Unknown]
  - Oral fungal infection [Recovered/Resolved]

NARRATIVE: CASE EVENT DATE: 20200101
